FAERS Safety Report 8094804-4 (Version None)
Quarter: 2011Q4

REPORT INFORMATION
  Report Type: 
  Country: None (occurrence: None)
  Receive Date: 20111222
  Receipt Date: 20111027
  Transmission Date: 20120403
  Serious: Yes (Hospitalization)
  Sender: FDA-Public Use
  Company Number: UTC-011708

PATIENT
  Age: 66 Year
  Sex: Male
  Weight: 97.7 kg

DRUGS (4)
  1. COUDAMIN (WARFARIN) [Concomitant]
  2. TRACLEER [Concomitant]
  3. DIURETICS (DIURETICS) [Concomitant]
  4. TYVASO [Suspect]
     Indication: PULMONARY ARTERIAL HYPERTENSION
     Dosage: 216 MCG (54 MCG, 4 IN 1 D), INHALATION
     Route: 055
     Dates: start: 20110317

REACTIONS (2)
  - HYPOTENSION [None]
  - HEART RATE INCREASED [None]
